FAERS Safety Report 12037276 (Version 1)
Quarter: 2016Q1

REPORT INFORMATION
  Report Type: Report from Study
  Country: US (occurrence: US)
  Receive Date: 20160208
  Receipt Date: 20160208
  Transmission Date: 20160526
  Serious: No
  Sender: FDA-Public Use
  Company Number: US-AMGEN-USASL2016013778

PATIENT
  Age: 48 Year
  Sex: Female

DRUGS (2)
  1. METHOTREXATE [Concomitant]
     Active Substance: METHOTREXATE
     Dosage: UNK
  2. ENBREL [Suspect]
     Active Substance: ETANERCEPT
     Indication: RHEUMATOID ARTHRITIS
     Dosage: 50 MG, WEEKLY
     Route: 065
     Dates: start: 2000

REACTIONS (7)
  - Bursitis [Unknown]
  - Musculoskeletal stiffness [Unknown]
  - Red blood cell sedimentation rate increased [Unknown]
  - Joint lock [Unknown]
  - Joint stiffness [Unknown]
  - Grip strength decreased [Unknown]
  - Joint crepitation [Unknown]
